FAERS Safety Report 5232212-1 (Version None)
Quarter: 2007Q1

REPORT INFORMATION
  Report Type: 
  Country: None (occurrence: None)
  Receive Date: 20070207
  Receipt Date: 20070126
  Transmission Date: 20070707
  Serious: Yes (Life-Threatening, Hospitalization, Disabling)
  Sender: FDA-Public Use
  Company Number: NO-JNJFOC-20061000442

PATIENT
  Sex: Female

DRUGS (14)
  1. REMICADE [Suspect]
     Indication: PSORIATIC ARTHROPATHY
     Route: 042
  2. NAPREN [Suspect]
     Indication: PSORIATIC ARTHROPATHY
     Route: 048
  3. IBUX [Suspect]
     Indication: DRUG USE FOR UNKNOWN INDICATION
     Route: 048
  4. PREDNISOLONE [Concomitant]
     Indication: VASCULITIS
     Route: 048
  5. PREDNISOLONE [Concomitant]
     Indication: PSORIATIC ARTHROPATHY
     Dosage: 5MG - 60MG
     Route: 048
  6. METHOTREXATE [Concomitant]
     Indication: PSORIATIC ARTHROPATHY
     Route: 048
  7. FOLIC ACID [Concomitant]
     Indication: PSORIATIC ARTHROPATHY
     Route: 048
  8. OXAZEPAM [Concomitant]
     Route: 048
  9. PARACETAMOL [Concomitant]
     Route: 048
  10. PARACET [Concomitant]
     Indication: PSORIATIC ARTHROPATHY
     Route: 048
  11. PLAVIX [Concomitant]
     Route: 048
  12. NEXIUM [Concomitant]
     Route: 048
  13. SOBRIL [Concomitant]
     Route: 048
  14. PINEX FORTE [Concomitant]
     Route: 048

REACTIONS (13)
  - ALANINE AMINOTRANSFERASE INCREASED [None]
  - ASTHENIA [None]
  - BLOOD CREATININE DECREASED [None]
  - CEREBRAL HAEMORRHAGE [None]
  - DYSURIA [None]
  - FEELING COLD [None]
  - HYPOAESTHESIA [None]
  - PERICARDITIS [None]
  - PLATELET COUNT DECREASED [None]
  - PLEURISY [None]
  - PNEUMONIA [None]
  - RASH [None]
  - SUBARACHNOID HAEMORRHAGE [None]
